FAERS Safety Report 13468748 (Version 1)
Quarter: 2017Q2

REPORT INFORMATION
  Report Type: Spontaneous
  Country: US (occurrence: US)
  Receive Date: 20170421
  Receipt Date: 20170421
  Transmission Date: 20170830
  Serious: Yes (Hospitalization)
  Sender: FDA-Public Use
  Company Number: PHEH2017US010904

PATIENT
  Age: 32 Year
  Sex: Female

DRUGS (17)
  1. SINGULAIR [Concomitant]
     Active Substance: MONTELUKAST SODIUM
     Indication: PRODUCT USED FOR UNKNOWN INDICATION
     Dosage: UNK UNK, QD
     Route: 065
  2. SOMAVERT [Suspect]
     Active Substance: PEGVISOMANT
     Indication: ACROMEGALY
     Dosage: 40 MG, UNK
     Route: 065
     Dates: start: 201507
  3. MINERALS [Concomitant]
     Active Substance: MINERALS
     Indication: PRODUCT USED FOR UNKNOWN INDICATION
     Dosage: 1 DF, QD
     Route: 048
  4. SOMATULINE [Suspect]
     Active Substance: LANREOTIDE ACETATE
     Dosage: 120MG/0.5ML, QMO (SOLUTION)
     Route: 058
  5. BENADRYL [Concomitant]
     Active Substance: DIPHENHYDRAMINE HYDROCHLORIDE
     Indication: PRODUCT USED FOR UNKNOWN INDICATION
     Dosage: UNK
     Route: 065
  6. LINZESS [Concomitant]
     Active Substance: LINACLOTIDE
     Indication: PRODUCT USED FOR UNKNOWN INDICATION
     Dosage: 1 DF, QD
     Route: 048
  7. SYNTHROID [Concomitant]
     Active Substance: LEVOTHYROXINE SODIUM
     Indication: PRODUCT USED FOR UNKNOWN INDICATION
     Dosage: 1 DF, QD
     Route: 048
  8. SOMATULINE [Suspect]
     Active Substance: LANREOTIDE ACETATE
     Indication: PRODUCT USED FOR UNKNOWN INDICATION
     Dosage: 90 MG, UNK
     Route: 058
     Dates: start: 201604
  9. NORCO [Concomitant]
     Active Substance: ACETAMINOPHEN\HYDROCODONE BITARTRATE
     Indication: PAIN
     Dosage: 325 MG, EVERY 4 HOUR, PRN
     Route: 048
  10. PRILOSEC [Concomitant]
     Active Substance: OMEPRAZOLE MAGNESIUM
     Indication: PRODUCT USED FOR UNKNOWN INDICATION
     Dosage: 1 DF, QD
     Route: 048
  11. LISINOPRIL AND HYDROCHLOROTHIAZIDE [Concomitant]
     Active Substance: HYDROCHLOROTHIAZIDE\LISINOPRIL
     Indication: PRODUCT USED FOR UNKNOWN INDICATION
     Dosage: 1 DF, QD
     Route: 048
  12. VITAMIN D3 [Concomitant]
     Active Substance: CHOLECALCIFEROL
     Indication: PRODUCT USED FOR UNKNOWN INDICATION
     Dosage: 1 DF, QD (5000 UNITS)
     Route: 048
  13. SOMAVERT [Suspect]
     Active Substance: PEGVISOMANT
     Dosage: 40 MG, UNK
     Route: 065
     Dates: end: 2016
  14. VITAMIN D [Concomitant]
     Active Substance: CHOLECALCIFEROL
     Indication: PRODUCT USED FOR UNKNOWN INDICATION
     Dosage: 1 DF, QD
     Route: 048
  15. OCTREOTIDE. [Suspect]
     Active Substance: OCTREOTIDE
     Indication: ACROMEGALY
     Dosage: UNK
     Route: 065
     Dates: start: 201507
  16. DYMISTA [Concomitant]
     Active Substance: AZELASTINE HYDROCHLORIDE\FLUTICASONE PROPIONATE
     Indication: PRODUCT USED FOR UNKNOWN INDICATION
     Dosage: 50MCG/1 INH NASAL SPARAY
     Route: 065
  17. PHENERGAN [Concomitant]
     Active Substance: PROMETHAZINE HYDROCHLORIDE
     Indication: PRODUCT USED FOR UNKNOWN INDICATION
     Dosage: UNK
     Route: 065

REACTIONS (10)
  - Arthralgia [Unknown]
  - Blood creatinine decreased [Unknown]
  - Blood albumin decreased [Unknown]
  - Blood alkaline phosphatase increased [Unknown]
  - Blood prolactin decreased [Unknown]
  - Hyperhidrosis [Unknown]
  - Diarrhoea [Unknown]
  - Myalgia [Unknown]
  - Drug ineffective [Unknown]
  - Nausea [Unknown]

NARRATIVE: CASE EVENT DATE: 20170110
